FAERS Safety Report 17041423 (Version 1)
Quarter: 2019Q4

REPORT INFORMATION
  Report Type: Other
  Country: IR (occurrence: IR)
  Receive Date: 20191118
  Receipt Date: 20191118
  Transmission Date: 20200122
  Serious: Yes (Other)
  Sender: FDA-Public Use
  Company Number: IR-DEXPHARM-20190979

PATIENT
  Age: 38 Year
  Sex: Female

DRUGS (3)
  1. CICLOSPORIN [Suspect]
     Active Substance: CYCLOSPORINE
     Dosage: DAILY DOSE: 50 MG MILLGRAM(S) EVERY 2 DAYS
  2. QUETIAPINE. [Concomitant]
     Active Substance: QUETIAPINE
     Dosage: DAILY DOSE: 100 MG MILLGRAM(S) EVERY DAYS
  3. VENLAFAXINE [Interacting]
     Active Substance: VENLAFAXINE HYDROCHLORIDE
     Dosage: DAILY DOSE: 37.5 MG MILLGRAM(S) EVERY DAYS

REACTIONS (1)
  - Drug interaction [Unknown]
